FAERS Safety Report 9922368 (Version 1)
Quarter: 2014Q1

REPORT INFORMATION
  Report Type: Spontaneous
  Country: US (occurrence: None)
  Receive Date: 20140224
  Receipt Date: 20140224
  Transmission Date: 20141002
  Serious: Yes (Other)
  Sender: FDA-Public Use
  Company Number: None

PATIENT
  Age: 62 Year
  Sex: Male
  Weight: 90.72 kg

DRUGS (1)
  1. SKELAXIN 800 MG KING PHARMACEUTICALS [Suspect]
     Indication: BACK PAIN
     Dosage: 1 PILL AS NEEDED
     Route: 048
     Dates: start: 20131206, end: 20131206

REACTIONS (1)
  - Headache [None]
